FAERS Safety Report 4594631-6 (Version None)
Quarter: 2005Q1

REPORT INFORMATION
  Report Type: 
  Country: None (occurrence: None)
  Receive Date: 20050301
  Receipt Date: 20041110
  Transmission Date: 20050727
  Serious: No
  Sender: FDA-Public Use
  Company Number: US-BRISTOL-MYERS SQUIBB COMPANY-12761342

PATIENT
  Age: 60 Year
  Sex: Female
  Weight: 42 kg

DRUGS (3)
  1. ERBITUX [Suspect]
     Indication: COLON CANCER
     Dosage: REC'D 340 MG WEEKLY SINCE AUG 2004
     Route: 042
     Dates: start: 20041109, end: 20041109
  2. ZOFRAN [Concomitant]
     Indication: PREMEDICATION
     Dates: start: 20041109, end: 20041109
  3. CPT-11 [Concomitant]

REACTIONS (1)
  - PYREXIA [None]
